FAERS Safety Report 20771298 (Version 1)
Quarter: 2022Q2

REPORT INFORMATION
  Report Type: Report from Study
  Country: US (occurrence: US)
  Receive Date: 20220429
  Receipt Date: 20220429
  Transmission Date: 20220721
  Serious: Yes (Other)
  Sender: FDA-Public Use
  Company Number: US-BIOGEN-2022BI01117523

PATIENT
  Age: 38 Year
  Sex: Female

DRUGS (8)
  1. TECFIDERA [Suspect]
     Active Substance: DIMETHYL FUMARATE
     Indication: Multiple sclerosis
     Route: 065
     Dates: start: 201411, end: 201803
  2. TECFIDERA [Suspect]
     Active Substance: DIMETHYL FUMARATE
     Route: 065
     Dates: start: 201906
  3. TECFIDERA [Suspect]
     Active Substance: DIMETHYL FUMARATE
     Route: 048
     Dates: start: 20220117
  4. VALIUM [Concomitant]
     Active Substance: DIAZEPAM
     Indication: Product used for unknown indication
     Dosage: TAKE 1 TO 2 TABLETS ONE HOUR PRIOR TO MRI
     Route: 048
     Dates: start: 20200504
  5. WAL-SOM (Doxylamine succinate Sleep) [Concomitant]
     Indication: Product used for unknown indication
     Dosage: TAKE BY MOUTH DAILY AS NEEDED
     Route: 048
  6. DRISDOL [Concomitant]
     Active Substance: ERGOCALCIFEROL
     Indication: Product used for unknown indication
     Dosage: TAKE 2 TABS WEEKLY FOR 2 MONTHS THEN 2 TABS PER MONTH
     Route: 048
     Dates: start: 20190923
  7. LEXAPRO [Concomitant]
     Active Substance: ESCITALOPRAM OXALATE
     Indication: Product used for unknown indication
     Route: 048
     Dates: start: 20200918, end: 20210913
  8. LEXAPRO [Concomitant]
     Active Substance: ESCITALOPRAM OXALATE
     Route: 048

REACTIONS (10)
  - Blindness unilateral [Unknown]
  - Eye pain [Unknown]
  - Facial paresis [Unknown]
  - Dysarthria [Unknown]
  - Vitamin D deficiency [Unknown]
  - Multiple sclerosis relapse [Unknown]
  - Iritis [Unknown]
  - Lymphocyte count decreased [Unknown]
  - Vomiting [Unknown]
  - Flushing [Unknown]

NARRATIVE: CASE EVENT DATE: 20190601
